FAERS Safety Report 14924776 (Version 1)
Quarter: 2018Q2

REPORT INFORMATION
  Report Type: Spontaneous
  Country: GB (occurrence: GB)
  Receive Date: 20180522
  Receipt Date: 20180522
  Transmission Date: 20180711
  Serious: Yes (Disabling)
  Sender: FDA-Public Use
  Company Number: GB-BAYER-2018-096904

PATIENT
  Age: 33 Year
  Sex: Female
  Weight: 71 kg

DRUGS (2)
  1. PROPRANOLOL [Concomitant]
     Active Substance: PROPRANOLOL HYDROCHLORIDE
  2. MIRENA [Suspect]
     Active Substance: LEVONORGESTREL
     Indication: CONTRACEPTION
     Dosage: 20 MCG/24HR, CONT
     Route: 015
     Dates: start: 20170806, end: 20180424

REACTIONS (6)
  - Speech disorder [Unknown]
  - Blindness [Unknown]
  - Pain [Unknown]
  - Hemiplegic migraine [Recovering/Resolving]
  - Hypoaesthesia [Unknown]
  - Vomiting [Unknown]

NARRATIVE: CASE EVENT DATE: 20171022
